FAERS Safety Report 12087248 (Version 1)
Quarter: 2016Q1

REPORT INFORMATION
  Report Type: Spontaneous
  Country: US (occurrence: US)
  Receive Date: 20160217
  Receipt Date: 20160217
  Transmission Date: 20160526
  Serious: No
  Sender: FDA-Public Use
  Company Number: US-ALLERGAN-1524985US

PATIENT
  Sex: Female

DRUGS (2)
  1. RESTASIS [Suspect]
     Active Substance: CYCLOSPORINE
     Dosage: MULTIPLE DOSES FROM 1 VIAL
     Route: 047
     Dates: start: 2012
  2. RESTASIS [Suspect]
     Active Substance: CYCLOSPORINE
     Indication: PRODUCT USED FOR UNKNOWN INDICATION
     Dosage: MULTIPLE DOSES FROM 1 VIAL
     Route: 047

REACTIONS (3)
  - Inappropriate schedule of drug administration [Unknown]
  - Alopecia [Unknown]
  - Incorrect product storage [Unknown]
